FAERS Safety Report 13700317 (Version 1)
Quarter: 2017Q2

REPORT INFORMATION
  Report Type: Spontaneous
  Country: US (occurrence: US)
  Receive Date: 20170628
  Receipt Date: 20170628
  Transmission Date: 20170830
  Serious: No
  Sender: FDA-Public Use
  Company Number: None

PATIENT
  Age: 69 Year
  Sex: Male

DRUGS (1)
  1. EMPAGLIFLOZIN [Suspect]
     Active Substance: EMPAGLIFLOZIN
     Dosage: AM
     Route: 048
     Dates: start: 20170530, end: 20170605

REACTIONS (6)
  - Nausea [None]
  - Dizziness [None]
  - Vomiting [None]
  - Tachycardia [None]
  - Throat tightness [None]
  - Balanoposthitis [None]

NARRATIVE: CASE EVENT DATE: 20170605
